FAERS Safety Report 9438659 (Version 2)
Quarter: 2013Q3

REPORT INFORMATION
  Report Type: Spontaneous
  Country: US (occurrence: US)
  Receive Date: 20130802
  Receipt Date: 20130805
  Transmission Date: 20140515
  Serious: No
  Sender: FDA-Public Use
  Company Number: US-BAYER-2013-093015

PATIENT
  Age: 54 Year
  Sex: Female
  Weight: 166.44 kg

DRUGS (1)
  1. ALEVE CAPLET [Suspect]
     Indication: TOOTHACHE
     Dosage: 2 DF, UNK
     Route: 048

REACTIONS (3)
  - Confusional state [Recovered/Resolved]
  - Paraesthesia oral [Recovered/Resolved]
  - Extra dose administered [None]
